FAERS Safety Report 5717085-2 (Version None)
Quarter: 2008Q2

REPORT INFORMATION
  Report Type: 
  Country: None (occurrence: None)
  Receive Date: 20080424
  Receipt Date: 20080414
  Transmission Date: 20081010
  Serious: Yes (Death)
  Sender: FDA-Public Use
  Company Number: BE-PFIZER INC-2008007836

PATIENT
  Sex: Female

DRUGS (8)
  1. SU-011,248 [Suspect]
     Indication: BREAST CANCER
     Dosage: DAILY DOSE:50MG-FREQ:CYCLIC OD: EVERY DAY
     Route: 048
     Dates: start: 20071031, end: 20071125
  2. ALDACTONE [Concomitant]
     Route: 048
  3. CANTABILINE [Concomitant]
     Route: 048
  4. MAGNESPASMYL [Concomitant]
     Route: 048
  5. ZOLPIDEM [Concomitant]
     Route: 048
  6. ATENOLOL [Concomitant]
     Route: 048
  7. CONTRAMAL [Concomitant]
     Route: 048
  8. XALATAN [Concomitant]
     Route: 048

REACTIONS (1)
  - SUDDEN DEATH [None]
